FAERS Safety Report 6221178-3 (Version None)
Quarter: 2009Q2

REPORT INFORMATION
  Report Type: 
  Country: None (occurrence: None)
  Receive Date: 20090610
  Receipt Date: 20090602
  Transmission Date: 20091009
  Serious: Yes (Other)
  Sender: FDA-Public Use
  Company Number: US-SANOFI-SYNTHELABO-A03200902387

PATIENT
  Age: 61 Year
  Sex: Male

DRUGS (5)
  1. LOVENOX [Suspect]
     Indication: THROMBOSIS
     Dosage: UNK
     Route: 065
  2. LOVENOX [Suspect]
     Route: 065
  3. WARFARIN SODIUM [Suspect]
     Indication: CEREBROVASCULAR ACCIDENT
     Dosage: UNK
     Route: 065
  4. TISSUE PLASMINOGEN ACTIVATOR [Suspect]
     Indication: CEREBROVASCULAR ACCIDENT
     Dosage: UNK
     Route: 065
  5. PLAVIX [Suspect]
     Indication: MYOCARDIAL INFARCTION
     Dosage: UNK
     Route: 048
     Dates: start: 20040201

REACTIONS (6)
  - BASAL CELL CARCINOMA [None]
  - CEREBRAL HAEMORRHAGE [None]
  - CONTUSION [None]
  - DEEP VEIN THROMBOSIS [None]
  - ISCHAEMIC STROKE [None]
  - SKIN HAEMORRHAGE [None]
